FAERS Safety Report 7159752-2 (Version None)
Quarter: 2010Q4

REPORT INFORMATION
  Report Type: 
  Country: None (occurrence: None)
  Receive Date: 20101214
  Receipt Date: 20101007
  Transmission Date: 20110411
  Serious: No
  Sender: FDA-Public Use
  Company Number: US-ASTRAZENECA-2010SE47578

PATIENT
  Age: 883 Month
  Sex: Female

DRUGS (2)
  1. CRESTOR [Suspect]
     Indication: BLOOD CHOLESTEROL INCREASED
     Route: 048
     Dates: start: 20100901
  2. CRESTOR [Suspect]
     Route: 048

REACTIONS (3)
  - BURNING SENSATION [None]
  - DYSGEUSIA [None]
  - TONGUE COATED [None]
